FAERS Safety Report 16573781 (Version 2)
Quarter: 2019Q4

REPORT INFORMATION
  Report Type: Spontaneous
  Country: US (occurrence: US)
  Receive Date: 20190715
  Receipt Date: 20191104
  Transmission Date: 20200122
  Serious: No
  Sender: FDA-Public Use
  Company Number: US-SHIRE-US201922635

PATIENT
  Sex: Female

DRUGS (3)
  1. GATTEX [Suspect]
     Active Substance: TEDUGLUTIDE\WATER
     Dosage: 0.43 INJ, 1X/DAY:QD
     Route: 058
     Dates: start: 20190617
  2. GATTEX [Suspect]
     Active Substance: TEDUGLUTIDE\WATER
     Dosage: 1.5 MILLIGRAM, 3X A WEEK, INFUSION
     Route: 050
  3. GATTEX [Suspect]
     Active Substance: TEDUGLUTIDE\WATER
     Indication: DIARRHOEA
     Dosage: 2.7 MILLIGRAM, 3X A WEEK, INFUSION
     Route: 050

REACTIONS (5)
  - Incorrect dose administered [Unknown]
  - Intentional product use issue [Unknown]
  - Product quality issue [Unknown]
  - Abdominal distension [Not Recovered/Not Resolved]
  - Incorrect route of product administration [Unknown]
